FAERS Safety Report 6248950-8 (Version None)
Quarter: 2009Q2

REPORT INFORMATION
  Report Type: 
  Country: None (occurrence: None)
  Receive Date: 20090625
  Receipt Date: 20090623
  Transmission Date: 20091009
  Serious: Yes (Other)
  Sender: FDA-Public Use
  Company Number: 1000006985

PATIENT
  Age: 38 Year
  Sex: Female

DRUGS (6)
  1. CITALOPRAM HYDROBROMIDE [Suspect]
     Indication: DEPRESSION
     Dosage: 20 MG (20 MG, 1 IN 1 D), ORAL
     Route: 048
     Dates: start: 20090101
  2. REBIF [Suspect]
     Indication: MULTIPLE SCLEROSIS
     Dosage: (44 MCG, 3 IN 1 WK), SUBCUTANEOUS
     Route: 058
     Dates: start: 20081119
  3. LEVOTHYROXINE SODIUM [Suspect]
     Indication: HYPOTHYROIDISM
  4. AMANTADINE HCL [Suspect]
     Indication: FATIGUE
  5. NAPROXEN [Suspect]
     Indication: MULTIPLE SCLEROSIS
  6. NAPROXEN [Suspect]
     Indication: PAIN

REACTIONS (3)
  - EYE HAEMORRHAGE [None]
  - RETINAL VEIN OCCLUSION [None]
  - SUPERFICIAL INJURY OF EYE [None]
